FAERS Safety Report 10201791 (Version 2)
Quarter: 2014Q2

REPORT INFORMATION
  Report Type: Spontaneous
  Country: FR (occurrence: FR)
  Receive Date: 20140528
  Receipt Date: 20140610
  Transmission Date: 20141212
  Serious: Yes (Hospitalization)
  Sender: FDA-Public Use
  Company Number: FR-PFIZER INC-2014139937

PATIENT
  Age: 48 Year
  Sex: Male

DRUGS (7)
  1. PRODILANTIN [Suspect]
     Dosage: UNK
     Route: 042
     Dates: start: 20140306
  2. PRODILANTIN [Suspect]
     Dosage: 350 MG
     Dates: start: 20140312
  3. LAMICTAL [Concomitant]
     Dosage: 250 MG, 2X/DAY
     Dates: start: 20140306
  4. KEPPRA [Concomitant]
  5. URBANYL [Concomitant]
     Dosage: UNK
     Dates: start: 20140306
  6. TEGRETOL [Concomitant]
  7. RISPERDAL [Concomitant]
     Dosage: UNK
     Dates: start: 20140217

REACTIONS (2)
  - Drug ineffective [Recovered/Resolved]
  - Status epilepticus [Recovered/Resolved]
